FAERS Safety Report 9150118 (Version 1)
Quarter: 2013Q1

REPORT INFORMATION
  Report Type: Spontaneous
  Country: GB (occurrence: GB)
  Receive Date: 20130308
  Receipt Date: 20130308
  Transmission Date: 20140127
  Serious: Yes (Other)
  Sender: FDA-Public Use
  Company Number: GB-TEVA-389082ISR

PATIENT
  Age: 54 Year
  Sex: Female
  Weight: 67 kg

DRUGS (15)
  1. TRIMETHOPRIM [Suspect]
     Dates: start: 20130204, end: 20130207
  2. AMITRIPTYLINE HYDROCHLORIDE [Concomitant]
     Dates: start: 20121030, end: 20130208
  3. CALCIUM CARBONATE [Concomitant]
     Dates: start: 20121030, end: 20130208
  4. MESALAZINE [Concomitant]
     Dates: start: 20121030
  5. OMEPRAZOLE [Concomitant]
     Dates: start: 20121030, end: 20130214
  6. OXYTETRACYCLINE [Concomitant]
     Dates: start: 20121030
  7. TERBINAFINE [Concomitant]
     Dates: start: 20121105, end: 20121119
  8. TERBINAFINE [Concomitant]
     Dates: start: 20121217, end: 20121231
  9. TERBINAFINE [Concomitant]
     Dates: start: 20130118, end: 20130201
  10. IBUPROFEN [Concomitant]
     Dates: start: 20121106, end: 20121204
  11. IBUPROFEN [Concomitant]
     Dates: start: 20130117, end: 20130214
  12. PROCHLORPERAZINE [Concomitant]
     Dates: start: 20121106, end: 20121204
  13. CODEINE PHOSPHATE [Concomitant]
     Dates: start: 20121214, end: 20121226
  14. CODEINE PHOSPHATE [Concomitant]
     Dates: start: 20130117, end: 20130129
  15. MOVICOL [Concomitant]
     Dates: start: 20130122

REACTIONS (4)
  - Rash [Recovered/Resolved]
  - Pruritus [Recovered/Resolved]
  - Swelling face [Recovered/Resolved]
  - Arthralgia [Unknown]
